FAERS Safety Report 6057385-2 (Version None)
Quarter: 2009Q1

REPORT INFORMATION
  Report Type: 
  Country: None (occurrence: None)
  Receive Date: 20090126
  Receipt Date: 20090126
  Transmission Date: 20090719
  Serious: No
  Sender: FDA-Public Use
  Company Number: None

PATIENT
  Age: 52 Year
  Sex: Male
  Weight: 63.5036 kg

DRUGS (1)
  1. GRIFULVIN V [Suspect]
     Indication: BODY TINEA
     Dosage: 500MG/DAY ONCE PO
     Route: 048
     Dates: start: 20090115, end: 20090119

REACTIONS (8)
  - BODY TINEA [None]
  - CONDITION AGGRAVATED [None]
  - DIARRHOEA [None]
  - DIZZINESS [None]
  - PRURITUS [None]
  - RASH [None]
  - SWELLING [None]
  - THROAT TIGHTNESS [None]
